FAERS Safety Report 23198000 (Version 1)
Quarter: 2023Q4

REPORT INFORMATION
  Report Type: Spontaneous
  Country: US (occurrence: US)
  Receive Date: 20231117
  Receipt Date: 20231117
  Transmission Date: 20240109
  Serious: Yes (Life-Threatening)
  Sender: FDA-Public Use
  Company Number: US-MLMSERVICE-20231103-4641992-1

PATIENT
  Age: 69 Year
  Sex: Female

DRUGS (1)
  1. VENLAFAXINE [Suspect]
     Active Substance: VENLAFAXINE HYDROCHLORIDE
     Indication: Product used for unknown indication
     Dosage: UNKNOWN QUANTITIES
     Route: 048

REACTIONS (9)
  - Generalised tonic-clonic seizure [Recovered/Resolved]
  - Electrocardiogram QRS complex prolonged [Recovering/Resolving]
  - Sinus tachycardia [Recovering/Resolving]
  - Arrhythmia [Recovering/Resolving]
  - Electrocardiogram ST-T segment abnormal [Unknown]
  - Atrioventricular block first degree [Unknown]
  - Defect conduction intraventricular [Unknown]
  - Metabolic acidosis [Unknown]
  - Overdose [Unknown]
